FAERS Safety Report 16285302 (Version 5)
Quarter: 2021Q1

REPORT INFORMATION
  Report Type: Report from Study
  Country: US (occurrence: US)
  Receive Date: 20190508
  Receipt Date: 20210326
  Transmission Date: 20210419
  Serious: Yes (Hospitalization, Other)
  Sender: FDA-Public Use
  Company Number: US-BRISTOL-MYERS SQUIBB COMPANY-BMS-2019-044152

PATIENT
  Age: 70 Year
  Sex: Male
  Weight: 72 kg

DRUGS (14)
  1. AMBIEN [Concomitant]
     Active Substance: ZOLPIDEM TARTRATE
     Indication: SLEEP DISORDER
     Dosage: 5 MILLIGRAM, 1 TABLET ORALLY ONCE (AT BED TIME) X 30 DAYS, AS NEEDED ? INSOMNIA
     Route: 048
  2. TRAZODONE [Concomitant]
     Active Substance: TRAZODONE HYDROCHLORIDE
     Indication: SLEEP DISORDER
     Dosage: 50 MILLIGRAM, 1 TABLET ORALLY ONCE (AT BED TIME) X 30 DAYS MDD: 1 TAB
     Route: 048
  3. HYDROXYPROPYL METHYLCELLULOSE [Concomitant]
     Active Substance: HYPROMELLOSES
     Indication: PRODUCT USED FOR UNKNOWN INDICATION
     Dosage: 1 GTT DROPS, Q2H, BOTH EYS
     Route: 065
  4. PACLITAXEL ALBUMIN [Suspect]
     Active Substance: PACLITAXEL
     Indication: ADENOCARCINOMA PANCREAS
     Dosage: 125 MILLIGRAM/SQ. METER
     Route: 065
     Dates: start: 20181219, end: 20190515
  5. ZANTAC [Concomitant]
     Active Substance: RANITIDINE HYDROCHLORIDE
     Indication: GASTROOESOPHAGEAL REFLUX DISEASE
     Dosage: 75 MILLIGRAM, 2 TIMES A DAY X 30 DAYS
     Route: 048
  6. ZOFRAN [Concomitant]
     Active Substance: ONDANSETRON HYDROCHLORIDE
     Indication: NAUSEA
     Dosage: 8 MILLIGRAM, EVERY 8 HOURS, AS NEEDED ? NAUSEA
     Route: 048
  7. RIVAROXABAN [Concomitant]
     Active Substance: RIVAROXABAN
     Indication: THROMBOSIS PROPHYLAXIS
     Dosage: 10 MILLIGRAM, 1 TABLET ONCE A DAY X 30 DAYS WITH FOOD
  8. NIVOLUMAB [Suspect]
     Active Substance: NIVOLUMAB
     Indication: ADENOCARCINOMA PANCREAS
     Dosage: 240 MILLIGRAM
     Dates: start: 20181219, end: 20190515
  9. CREON [Concomitant]
     Active Substance: PANCRELIPASE AMYLASE\PANCRELIPASE LIPASE\PANCRELIPASE PROTEASE
     Indication: METABOLIC DISORDER
     Dosage: 24000 UNIT, 2 TABLETS WITH MEALS AND 1 TABLET WITH SNACKS
     Route: 048
  10. DOXYLAMINE [Concomitant]
     Active Substance: DOXYLAMINE
     Indication: SLEEP DISORDER
     Dosage: 25 MILLIGRAM, ONCE A DAY AS NEEDED
     Route: 048
  11. ACETAMINOPHEN. [Concomitant]
     Active Substance: ACETAMINOPHEN
     Indication: PRODUCT USED FOR UNKNOWN INDICATION
     Dosage: 500 MILLIGRAM, Q6H
     Route: 048
  12. GEMCITABINE HYDROCHLORIDE. [Suspect]
     Active Substance: GEMCITABINE HYDROCHLORIDE
     Indication: ADENOCARCINOMA PANCREAS
     Dosage: 1000 MILLIGRAM/SQ. METER
     Route: 065
     Dates: start: 20181219, end: 20190515
  13. MOTRIN [Concomitant]
     Active Substance: IBUPROFEN
     Indication: PAIN
     Dosage: 300 MILLIGRAM, TWO TABLETS ONCE A DAY, AS NEEDED
     Route: 048
  14. FUROSEMIDE. [Concomitant]
     Active Substance: FUROSEMIDE
     Indication: SWELLING
     Dosage: 20 MILLIGRAM, QD
     Route: 048

REACTIONS (2)
  - Muscular weakness [Recovered/Resolved]
  - Demyelinating polyneuropathy [Recovered/Resolved]

NARRATIVE: CASE EVENT DATE: 20190423
